FAERS Safety Report 10545531 (Version 1)
Quarter: 2014Q4

REPORT INFORMATION
  Report Type: Spontaneous
  Country: US (occurrence: US)
  Receive Date: 20141027
  Receipt Date: 20141027
  Transmission Date: 20150529
  Serious: No
  Sender: FDA-Public Use
  Company Number: US-ASTELLAS-2014US006896

PATIENT
  Age: 78 Year
  Sex: Male

DRUGS (1)
  1. LEXISCAN [Suspect]
     Active Substance: REGADENOSON
     Indication: PRODUCT USED FOR UNKNOWN INDICATION
     Dosage: 0.4 MG, TOTAL DOSE
     Route: 042

REACTIONS (3)
  - Injection site extravasation [Unknown]
  - Injection site pain [Unknown]
  - Injection site swelling [Unknown]
